FAERS Safety Report 7700077-1 (Version None)
Quarter: 2011Q3

REPORT INFORMATION
  Report Type: 
  Country: None (occurrence: None)
  Receive Date: 20110822
  Receipt Date: 20110810
  Transmission Date: 20111222
  Serious: Yes (Other)
  Sender: FDA-Public Use
  Company Number: JP-JNJFOC-20110803821

PATIENT
  Age: 66 Year
  Sex: Male

DRUGS (6)
  1. MUCODYNE [Concomitant]
     Route: 048
  2. LOXONIN [Concomitant]
     Route: 048
  3. ITRACONAZOLE [Suspect]
     Indication: BRONCHOPULMONARY ASPERGILLOSIS
     Route: 048
     Dates: start: 20110512, end: 20110714
  4. FLUNASE [Concomitant]
     Route: 045
  5. ITRACONAZOLE [Suspect]
     Indication: BRONCHOPULMONARY ASPERGILLOSIS
     Route: 065
  6. BAKUMONDOUTO [Concomitant]
     Route: 048

REACTIONS (1)
  - PNEUMONIA [None]
